FAERS Safety Report 14853315 (Version 2)
Quarter: 2018Q2

REPORT INFORMATION
  Report Type: Spontaneous
  Country: GB (occurrence: FR)
  Receive Date: 20180507
  Receipt Date: 20180621
  Transmission Date: 20180711
  Serious: Yes (Life-Threatening)
  Sender: FDA-Public Use
  Company Number: FR-FRESENIUS KABI-FK201805276

PATIENT
  Age: 65 Year
  Sex: Female

DRUGS (2)
  1. PACLITAXEL (MANUFACTURER UNKNOWN) [Interacting]
     Active Substance: PACLITAXEL
     Indication: OVARIAN CANCER
     Dosage: UNKNOWN
     Route: 041
     Dates: start: 20180219, end: 20180321
  2. CARBOPLATIN (MANUFACTURER UNKNOWN) [Suspect]
     Active Substance: CARBOPLATIN
     Indication: OVARIAN CANCER
     Dosage: UNKNOWN
     Route: 041
     Dates: start: 20180219, end: 20180315

REACTIONS (4)
  - Drug interaction [Unknown]
  - Anaemia [Not Recovered/Not Resolved]
  - Neutropenia [Recovered/Resolved]
  - Platelet count decreased [Recovered/Resolved]

NARRATIVE: CASE EVENT DATE: 20180315
